FAERS Safety Report 11621955 (Version 1)
Quarter: 2015Q4

REPORT INFORMATION
  Report Type: Spontaneous
  Country: US (occurrence: None)
  Receive Date: 20151009
  Receipt Date: 20151009
  Transmission Date: 20160304
  Serious: Yes (Death)
  Sender: FDA-Public Use
  Company Number: None

PATIENT
  Age: 75 Year
  Sex: Male

DRUGS (6)
  1. IBUPROFEN. [Concomitant]
     Active Substance: IBUPROFEN
  2. GLIPIZIDE. [Concomitant]
     Active Substance: GLIPIZIDE
  3. FOSINOPRIL [Concomitant]
     Active Substance: FOSINOPRIL
  4. VALSARTIN [Concomitant]
  5. CARVEDILOL 3.125 [Suspect]
     Active Substance: CARVEDILOL
     Indication: PRODUCT USED FOR UNKNOWN INDICATION
     Route: 048
     Dates: start: 20150831, end: 20150904
  6. COREG [Concomitant]
     Active Substance: CARVEDILOL

REACTIONS (4)
  - Cardio-respiratory arrest [None]
  - Contraindicated drug administered [None]
  - Chest pain [None]
  - Fall [None]

NARRATIVE: CASE EVENT DATE: 20150904
